FAERS Safety Report 10513940 (Version 1)
Quarter: 2014Q4

REPORT INFORMATION
  Report Type: Spontaneous
  Country: JP (occurrence: JP)
  Receive Date: 20141013
  Receipt Date: 20141013
  Transmission Date: 20150528
  Serious: Yes (Hospitalization, Other)
  Sender: FDA-Public Use
  Company Number: JP-ACTAVIS-2014-21620

PATIENT
  Age: 70 Year
  Sex: Male

DRUGS (13)
  1. LEVOFOLINATE [Suspect]
     Active Substance: LEVOLEUCOVORIN CALCIUM
     Indication: METASTASES TO LIVER
     Dosage: 200 MG/M2,CYCLICAL,DAY 1
     Route: 042
  2. FLUOROURACIL 5 FU [Concomitant]
     Active Substance: FLUOROURACIL
     Dosage: 2400 MG/M2, CYCLICAL, AT 46HOURS, EVERY 2WEEKS,1 CYCLE
     Route: 041
  3. FLUOROURACIL 5 FU [Concomitant]
     Active Substance: FLUOROURACIL
     Dosage: 400 MG/M2, CYCLICAL,DAY 1
     Route: 042
  4. OXALIPLATIN (UNKNOWN) [Suspect]
     Active Substance: OXALIPLATIN
     Dosage: 85 MG/M2, CYCLICAL, DAY 1
     Route: 042
  5. IRINOTECAN (UNKNOWN) [Suspect]
     Active Substance: IRINOTECAN
     Indication: METASTASES TO LIVER
     Dosage: 150 MG/M2, CYCLICAL,DAY 1
     Route: 042
  6. LEVOFOLINATE [Suspect]
     Active Substance: LEVOLEUCOVORIN CALCIUM
     Dosage: 200 MG/M2, CYCLICAL,DAY 1
     Route: 042
  7. FLUOROURACIL 5 FU [Concomitant]
     Active Substance: FLUOROURACIL
     Dosage: 400 MG/M2, CYCLICAL,DAY 1
     Route: 042
  8. LEVOFOLINATE [Suspect]
     Active Substance: LEVOLEUCOVORIN CALCIUM
     Dosage: 200 MG/M2, CYCLICAL,DAY1
     Route: 042
  9. FLUOROURACIL 5 FU [Concomitant]
     Active Substance: FLUOROURACIL
     Dosage: 2400 MG/M2, CYCLICAL, AT 46HOURS, EVERY 2WEEKS, 15CYCLES
     Route: 041
  10. OXALIPLATIN (UNKNOWN) [Suspect]
     Active Substance: OXALIPLATIN
     Indication: METASTASES TO LIVER
     Dosage: 85 MG/M2, CYCLICAL,DAY 1
     Route: 042
  11. FLUOROURACIL 5 FU [Concomitant]
     Active Substance: FLUOROURACIL
     Dosage: 2400 MG/M2, CYCLICAL, AT 46HOURS, EVERY 2 WEEKS, 3CYCLES
     Route: 041
  12. FLUOROURACIL 5 FU [Concomitant]
     Active Substance: FLUOROURACIL
     Indication: METASTASES TO LIVER
     Dosage: 400 MG/M2, CYCLICAL,DAY 1
     Route: 065
  13. BEVACIZUMAB [Concomitant]
     Active Substance: BEVACIZUMAB
     Indication: METASTASES TO LIVER
     Dosage: 330 MG/M2, CYCLICAL,DAY 1
     Route: 042

REACTIONS (1)
  - Pulmonary oedema [Unknown]
